FAERS Safety Report 5635504-7 (Version None)
Quarter: 2008Q1

REPORT INFORMATION
  Report Type: 
  Country: None (occurrence: None)
  Receive Date: 20080222
  Receipt Date: 20080211
  Transmission Date: 20080703
  Serious: Yes (Other)
  Sender: FDA-Public Use
  Company Number: IL-GENENTECH-255835

PATIENT
  Age: 64 Year
  Sex: Male

DRUGS (1)
  1. MABTHERA [Suspect]
     Indication: B-CELL LYMPHOMA
     Dosage: 750 MG, 1/WEEK
     Route: 042
     Dates: start: 20080115

REACTIONS (4)
  - BRONCHOSPASM [None]
  - DYSPNOEA [None]
  - HYPOTENSION [None]
  - PURPURA [None]
